FAERS Safety Report 4737531-0 (Version None)
Quarter: 2005Q3

REPORT INFORMATION
  Report Type: 
  Country: None (occurrence: None)
  Receive Date: 20050809
  Receipt Date: 20031201
  Transmission Date: 20060218
  Serious: No
  Sender: FDA-Public Use
  Company Number: US-GLAXOSMITHKLINE-A0441354A

PATIENT
  Age: 59 Year
  Sex: Female

DRUGS (1)
  1. COMMIT [Suspect]

REACTIONS (5)
  - DEFAECATION URGENCY [None]
  - DIARRHOEA [None]
  - FLATULENCE [None]
  - NICOTINE DEPENDENCE [None]
  - WEIGHT INCREASED [None]
